FAERS Safety Report 5226133-8 (Version None)
Quarter: 2007Q1

REPORT INFORMATION
  Report Type: 
  Country: None (occurrence: None)
  Receive Date: 20070201
  Receipt Date: 20070131
  Transmission Date: 20070707
  Serious: Yes (Hospitalization)
  Sender: FDA-Public Use
  Company Number: JP-GLAXOSMITHKLINE-B0456432A

PATIENT
  Age: 65 Year
  Sex: Female

DRUGS (3)
  1. PAXIL [Suspect]
     Indication: DEPRESSION
     Route: 048
     Dates: start: 20060531, end: 20060626
  2. ESTAZOLAM [Concomitant]
     Route: 048
  3. NITRAZEPAM [Concomitant]
     Route: 048

REACTIONS (3)
  - CONFUSIONAL STATE [None]
  - MANIA [None]
  - SPEECH DISORDER [None]
